FAERS Safety Report 20429720 (Version 2)
Quarter: 2022Q1

REPORT INFORMATION
  Report Type: Spontaneous
  Country: JP (occurrence: JP)
  Receive Date: 20220204
  Receipt Date: 20220215
  Transmission Date: 20220423
  Serious: Yes (Other)
  Sender: FDA-Public Use
  Company Number: JP-PHARMALEX-2021001393

PATIENT
  Age: 41 Year
  Sex: Female

DRUGS (2)
  1. PAROXETINE [Interacting]
     Active Substance: PAROXETINE
     Indication: Depression
     Dosage: 50 MILLIGRAM, QD
     Route: 065
  2. TRAMADOL [Interacting]
     Active Substance: TRAMADOL
     Indication: Arthralgia
     Dosage: 150 MILLIGRAM, QD
     Route: 065

REACTIONS (6)
  - Drug interaction [Unknown]
  - Serotonin syndrome [Recovered/Resolved]
  - Joint hyperextension [Recovered/Resolved]
  - Tremor [Unknown]
  - Dystonia [Recovered/Resolved]
  - Posture abnormal [Recovered/Resolved]
